FAERS Safety Report 9327477 (Version 2)
Quarter: 2013Q3

REPORT INFORMATION
  Report Type: Spontaneous
  Country: US (occurrence: US)
  Receive Date: 20130604
  Receipt Date: 20130708
  Transmission Date: 20140515
  Serious: No
  Sender: FDA-Public Use
  Company Number: US-AMGEN-USASP2013038263

PATIENT
  Age: 52 Year
  Sex: Female
  Weight: 83.9 kg

DRUGS (5)
  1. ENBREL [Suspect]
     Indication: RHEUMATOID ARTHRITIS
     Dosage: 50 MG, QWK
     Route: 058
     Dates: start: 20130508
  2. TYLENOL                            /00020001/ [Concomitant]
     Dosage: 500 MG, EZ UNK
  3. LISINOPRIL [Concomitant]
     Dosage: 5 MG, UNK
  4. VITAMIN D                          /00107901/ [Concomitant]
     Dosage: 50000 UNIT, UNK
  5. LEFLUNOMIDE [Concomitant]
     Dosage: 20 MG, UNK

REACTIONS (2)
  - Injection site erythema [Not Recovered/Not Resolved]
  - Injection site rash [Unknown]
